FAERS Safety Report 19085057 (Version 1)
Quarter: 2021Q2

REPORT INFORMATION
  Report Type: Spontaneous
  Country: US (occurrence: US)
  Receive Date: 20210402
  Receipt Date: 20210402
  Transmission Date: 20210717
  Serious: Yes (Hospitalization, Other)
  Sender: FDA-Public Use
  Company Number: US-GRANULES-US-2021GRALIT00224

PATIENT
  Age: 45 Year
  Sex: Male

DRUGS (4)
  1. N?ACETYLCYSTEINE [Interacting]
     Active Substance: ACETYLCYSTEINE
     Dosage: 18.75 MG/KG/HOUR
     Route: 042
  2. FOMEPIZOLE. [Interacting]
     Active Substance: FOMEPIZOLE
     Indication: HEPATOTOXICITY
     Route: 042
  3. N?ACETYLCYSTEINE [Interacting]
     Active Substance: ACETYLCYSTEINE
     Indication: HEPATOTOXICITY
     Dosage: 12.5 MG/KG/HOUR
     Route: 042
  4. ACETAMINOPHEN. [Suspect]
     Active Substance: ACETAMINOPHEN
     Indication: PRODUCT USED FOR UNKNOWN INDICATION
     Route: 048

REACTIONS (3)
  - Overdose [Unknown]
  - Toxicity to various agents [Unknown]
  - Hepatotoxicity [Recovering/Resolving]
